FAERS Safety Report 5514000-1 (Version None)
Quarter: 2007Q4

REPORT INFORMATION
  Report Type: 
  Country: None (occurrence: None)
  Receive Date: 20071113
  Receipt Date: 20071031
  Transmission Date: 20080405
  Serious: Yes (Hospitalization)
  Sender: FDA-Public Use
  Company Number: US-AVENTIS-200619978GDDC

PATIENT
  Age: 44 Year
  Sex: Male
  Weight: 75.4 kg

DRUGS (9)
  1. AFLIBERCEPT [Suspect]
     Route: 042
     Dates: start: 20060829, end: 20060829
  2. DOCETAXEL [Suspect]
     Route: 042
     Dates: start: 20060829, end: 20060829
  3. CISPLATIN [Suspect]
     Route: 042
     Dates: start: 20060829, end: 20060829
  4. FLUOROURACIL [Suspect]
     Route: 042
     Dates: start: 20060829, end: 20060903
  5. ENALAPRIL MALEATE [Concomitant]
     Indication: HYPERTENSION
     Route: 048
     Dates: start: 20060723, end: 20060919
  6. ATENOLOL [Concomitant]
     Indication: HYPERTENSION
     Route: 048
     Dates: start: 20060811
  7. NEXIUM [Concomitant]
     Route: 048
     Dates: start: 20060331, end: 20070201
  8. TRIAMTERENE AND HYDROCHLOROTHIAZIDE [Concomitant]
     Indication: HYPERTENSION
     Dosage: DOSE: 375/25
     Route: 048
     Dates: start: 20060908, end: 20060918
  9. LOVENOX [Concomitant]
     Indication: THROMBOSIS
     Route: 058
     Dates: start: 20060808

REACTIONS (1)
  - HYPERKALAEMIA [None]
